FAERS Safety Report 6443203-7 (Version None)
Quarter: 2009Q4

REPORT INFORMATION
  Report Type: 
  Country: None (occurrence: None)
  Receive Date: 20091117
  Receipt Date: 20091113
  Transmission Date: 20100525
  Serious: Yes (Other)
  Sender: FDA-Public Use
  Company Number: US-ELI_LILLY_AND_COMPANY-US200909003660

PATIENT
  Sex: Female
  Weight: 85.714 kg

DRUGS (3)
  1. BYETTA [Suspect]
     Indication: TYPE 2 DIABETES MELLITUS
     Dosage: 5 UG, 2/D
     Route: 058
     Dates: start: 20060101, end: 20090801
  2. GLUCOPHAGE [Concomitant]
     Indication: TYPE 2 DIABETES MELLITUS
     Dosage: 1000 MG, 2/D
     Route: 048
  3. AMARYL [Concomitant]
     Indication: TYPE 2 DIABETES MELLITUS
     Dosage: 2 MG, 2/D
     Route: 048
     Dates: start: 20090801, end: 20090916

REACTIONS (11)
  - BLOOD GLUCOSE DECREASED [None]
  - BLOOD GLUCOSE INCREASED [None]
  - BREAST RECONSTRUCTION [None]
  - CHOLELITHIASIS [None]
  - DECREASED APPETITE [None]
  - GASTRIC OPERATION [None]
  - HAEMOGLOBIN DECREASED [None]
  - HUNGER [None]
  - PANCREATITIS [None]
  - PROCEDURAL COMPLICATION [None]
  - WEIGHT DECREASED [None]
